FAERS Safety Report 9903920 (Version 3)
Quarter: 2014Q1

REPORT INFORMATION
  Report Type: Spontaneous
  Country: US (occurrence: US)
  Receive Date: 20140218
  Receipt Date: 20140331
  Transmission Date: 20141002
  Serious: Yes (Other)
  Sender: FDA-Public Use
  Company Number: US-BIOGENIDEC-2014BI015115

PATIENT
  Sex: Female

DRUGS (10)
  1. TYSABRI [Suspect]
     Indication: MULTIPLE SCLEROSIS
     Route: 042
     Dates: start: 20121116, end: 20131106
  2. AVONEX [Concomitant]
     Indication: MULTIPLE SCLEROSIS
     Route: 030
  3. VENLAFAXINE [Concomitant]
  4. CLONAZEPAM [Concomitant]
  5. FESOTERODINE FUMARATE [Concomitant]
  6. IBUPROFEN [Concomitant]
  7. AMPHETAMINE-DEXTROAMPHETAMINE [Concomitant]
  8. LEVOTHYROXINE [Concomitant]
  9. CHOLECALCIFEROL [Concomitant]
  10. DESMOPRESSIN ACETATE [Concomitant]

REACTIONS (1)
  - Self injurious behaviour [Unknown]
